FAERS Safety Report 5606179-8 (Version None)
Quarter: 2008Q1

REPORT INFORMATION
  Report Type: 
  Country: None (occurrence: None)
  Receive Date: 20080129
  Receipt Date: 20070410
  Transmission Date: 20080703
  Serious: No
  Sender: FDA-Public Use
  Company Number: A0635373A

PATIENT
  Age: 24 Year
  Sex: Female

DRUGS (2)
  1. WELLBUTRIN [Suspect]
     Indication: DEPRESSIVE SYMPTOM
     Dosage: 200MGD SEE DOSAGE TEXT
     Route: 048
     Dates: start: 20051101, end: 20061001
  2. ABILIFY [Concomitant]

REACTIONS (1)
  - DYSPHONIA [None]
